FAERS Safety Report 8162936-8 (Version None)
Quarter: 2012Q1

REPORT INFORMATION
  Report Type: 
  Country: None (occurrence: None)
  Receive Date: 20120224
  Receipt Date: 20120213
  Transmission Date: 20120608
  Serious: Yes (Disabling, Other)
  Sender: FDA-Public Use
  Company Number: US-UCBSA-051889

PATIENT
  Age: 60 Year
  Sex: Female
  Weight: 49.89 kg

DRUGS (7)
  1. LEXAPRO [Interacting]
     Indication: DEPRESSION
  2. LAMICTAL [Interacting]
     Indication: EPILEPSY
     Route: 048
  3. NO CONCOMITANT MEDICATION [Concomitant]
  4. PREMARIN [Interacting]
     Route: 048
  5. TOPAMAX [Interacting]
     Indication: EPILEPSY
     Dosage: 100MG ONE TABLET IN MORNING, 100MG TWO TABLETS AT NIGHT
     Route: 048
  6. VIMPAT [Suspect]
     Indication: EPILEPSY
  7. PROVERA [Interacting]
     Route: 048

REACTIONS (6)
  - BALANCE DISORDER [None]
  - TREMOR [None]
  - DRUG INEFFECTIVE [None]
  - EPILEPSY [None]
  - DRUG INTERACTION [None]
  - SOMNOLENCE [None]
